FAERS Safety Report 5546097-7 (Version None)
Quarter: 2007Q4

REPORT INFORMATION
  Report Type: 
  Country: None (occurrence: None)
  Receive Date: 20071211
  Receipt Date: 20071008
  Transmission Date: 20080405
  Serious: No
  Sender: FDA-Public Use
  Company Number: US-BRISTOL-MYERS SQUIBB COMPANY-13933486

PATIENT
  Age: 50 Year
  Sex: Female
  Weight: 54 kg

DRUGS (4)
  1. EMSAM [Suspect]
     Indication: DEPRESSION
     Dosage: THE DOSE HAS BEEN INCREASED TO 9 MG/24HR.
     Route: 062
  2. SEROQUEL [Concomitant]
  3. ATIVAN [Concomitant]
  4. CLONOPIN [Concomitant]

REACTIONS (2)
  - DEPRESSION [None]
  - DRUG INEFFECTIVE [None]
